FAERS Safety Report 18177360 (Version 1)
Quarter: 2020Q3

REPORT INFORMATION
  Report Type: Spontaneous
  Country: US (occurrence: US)
  Receive Date: 20200820
  Receipt Date: 20200820
  Transmission Date: 20201103
  Serious: Yes (Other)
  Sender: FDA-Public Use
  Company Number: US-PFIZER INC-2020321486

PATIENT
  Age: 77 Year
  Sex: Female

DRUGS (2)
  1. ROSUVASTATIN. [Interacting]
     Active Substance: ROSUVASTATIN
     Dosage: UNK
     Dates: end: 2020
  2. VYNDAMAX [Suspect]
     Active Substance: TAFAMIDIS
     Dosage: 61 MG
     Dates: start: 202003, end: 2020

REACTIONS (6)
  - Restrictive cardiomyopathy [Unknown]
  - Gastrointestinal disorder [Unknown]
  - Orthostatic hypotension [Unknown]
  - Drug interaction [Unknown]
  - Diarrhoea [Unknown]
  - Tendonitis [Recovered/Resolved]

NARRATIVE: CASE EVENT DATE: 2020
